FAERS Safety Report 13050315 (Version 3)
Quarter: 2016Q4

REPORT INFORMATION
  Report Type: Spontaneous
  Country: BR (occurrence: BR)
  Receive Date: 20161221
  Receipt Date: 20161230
  Transmission Date: 20170207
  Serious: Yes (Hospitalization, Other)
  Sender: FDA-Public Use
  Company Number: BR-GLAXOSMITHKLINE-BR2016GSK184991

PATIENT
  Age: 39 Year
  Sex: Male
  Weight: 70 kg

DRUGS (2)
  1. OMEPRAZOLE. [Concomitant]
     Active Substance: OMEPRAZOLE
     Indication: PRODUCT USED FOR UNKNOWN INDICATION
     Dosage: UNK
     Route: 048
  2. ZINNAT [Suspect]
     Active Substance: CEFUROXIME AXETIL
     Indication: URINARY TRACT INFECTION PSEUDOMONAL
     Dosage: 1 DF, BID
     Route: 048
     Dates: start: 20161106, end: 20161109

REACTIONS (7)
  - Escherichia bacteraemia [Recovered/Resolved]
  - Drug ineffective [Recovered/Resolved]
  - Bacteraemia [Recovered/Resolved]
  - Chills [Recovered/Resolved]
  - Myalgia [Recovered/Resolved]
  - Sepsis [Recovered/Resolved]
  - Pyrexia [Recovered/Resolved]

NARRATIVE: CASE EVENT DATE: 20161109
